FAERS Safety Report 5419748-5 (Version None)
Quarter: 2007Q3

REPORT INFORMATION
  Report Type: 
  Country: None (occurrence: None)
  Receive Date: 20070815
  Receipt Date: 20070730
  Transmission Date: 20080115
  Serious: Yes (Other)
  Sender: FDA-Public Use
  Company Number: ACO_00369_2007

PATIENT
  Age: 63 Year
  Sex: Female
  Weight: 72 kg

DRUGS (6)
  1. SIRDALUD  (SIRDALUD- TIZANIDINE HYDROCHLORIDE) (NOT SPECIFIED) [Suspect]
     Indication: DRUG USE FOR UNKNOWN INDICATION
     Dosage: DF
     Dates: start: 20070701
  2. DIOVAN [Suspect]
     Indication: HYPERTENSION
     Dosage: 80 MG QD ORAL, 80 MG BID ORAL
     Route: 048
     Dates: start: 20070622, end: 20070716
  3. DIOVAN [Suspect]
     Indication: HYPERTENSION
     Dosage: 80 MG QD ORAL, 80 MG BID ORAL
     Route: 048
     Dates: start: 20070716
  4. DIOVAN [Suspect]
     Indication: HYPERTENSION
     Dosage: 160 MG QD ORAL
     Route: 048
     Dates: start: 20070701
  5. SUBLINGUAL TABLET - NOT SPECIFIED [Suspect]
     Indication: DRUG USE FOR UNKNOWN INDICATION
     Dosage: DF SUBLINGUAL
     Route: 060
     Dates: start: 20070716
  6. SUBLINGUAL TABLET [Concomitant]

REACTIONS (2)
  - BLOOD PRESSURE FLUCTUATION [None]
  - HYPERTENSION [None]
